FAERS Safety Report 9537880 (Version 2)
Quarter: 2013Q3

REPORT INFORMATION
  Report Type: Report from Study
  Country: FR (occurrence: FR)
  Receive Date: 20130919
  Receipt Date: 20130919
  Transmission Date: 20140515
  Serious: Yes (Death)
  Sender: FDA-Public Use
  Company Number: FR-ROCHE-GNE296159

PATIENT
  Sex: Male

DRUGS (3)
  1. RANIBIZUMAB [Suspect]
     Indication: AGE-RELATED MACULAR DEGENERATION
     Route: 050
     Dates: start: 20080612, end: 20091023
  2. LESCOL [Concomitant]
     Indication: PRODUCT USED FOR UNKNOWN INDICATION
  3. FOZITEC [Concomitant]
     Indication: AGE-RELATED MACULAR DEGENERATION

REACTIONS (1)
  - Myocardial infarction [Fatal]
